FAERS Safety Report 9496883 (Version 1)
Quarter: 2013Q3

REPORT INFORMATION
  Report Type: Spontaneous
  Country: US (occurrence: None)
  Receive Date: 20130903
  Receipt Date: 20130903
  Transmission Date: 20140515
  Serious: No
  Sender: FDA-Public Use
  Company Number: None

PATIENT
  Age: 35 Year
  Sex: Female
  Weight: 95.26 kg

DRUGS (2)
  1. PRISTIQ [Suspect]
     Indication: MAJOR DEPRESSION
     Dosage: 50 MG/1 PILL ONCE DAILY TAKEN BY MOUTH
     Route: 048
     Dates: start: 20130708, end: 20130812
  2. PRISTIQ [Suspect]
     Indication: ANXIETY
     Dosage: 50 MG/1 PILL ONCE DAILY TAKEN BY MOUTH
     Route: 048
     Dates: start: 20130708, end: 20130812

REACTIONS (2)
  - Bruxism [None]
  - Toothache [None]
